FAERS Safety Report 7692265-8 (Version None)
Quarter: 2011Q3

REPORT INFORMATION
  Report Type: 
  Country: None (occurrence: None)
  Receive Date: 20110818
  Receipt Date: 20110811
  Transmission Date: 20111222
  Serious: Yes (Hospitalization, Other)
  Sender: FDA-Public Use
  Company Number: JP-CEPHALON-2011001420

PATIENT
  Age: 70 Year
  Sex: Male

DRUGS (12)
  1. LENOGRASTIM [Concomitant]
     Dates: start: 20110317, end: 20110323
  2. CARVEDILOL [Concomitant]
  3. BENDAMUSTINE HCL [Suspect]
     Indication: B-CELL LYMPHOMA
     Route: 041
     Dates: start: 20110310, end: 20110422
  4. HYDROCORTISONE SODIUM SUCCINATE [Concomitant]
     Dates: start: 20110310, end: 20110421
  5. LORATADINE [Concomitant]
     Dates: end: 20110517
  6. VALACICLOVIR HCL [Concomitant]
     Dates: start: 20110310, end: 20110517
  7. GRANISETRON HYDROCHLORIDE [Concomitant]
     Dates: start: 20110310, end: 20110422
  8. BENDAMUSTINE HCL [Suspect]
     Route: 042
     Dates: start: 20110421, end: 20110422
  9. LEVOFLOXACINC [Concomitant]
     Dates: start: 20110317, end: 20110326
  10. SULFAMETHOXAZOLE AND TRIMETHOPRIM [Concomitant]
     Dates: start: 20110310, end: 20110517
  11. DEXAMETHASONE SODIUM PHOSPHATE [Concomitant]
     Dates: start: 20110310, end: 20110421
  12. RITUXIMAB [Concomitant]
     Indication: B-CELL LYMPHOMA
     Dates: start: 20110310, end: 20110421

REACTIONS (8)
  - BLOOD BILIRUBIN INCREASED [None]
  - FEBRILE NEUTROPENIA [None]
  - NEUTROPHIL COUNT DECREASED [None]
  - PHLEBITIS [None]
  - WHITE BLOOD CELL COUNT DECREASED [None]
  - DIARRHOEA [None]
  - AGRANULOCYTOSIS [None]
  - CYTOMEGALOVIRUS INFECTION [None]
